FAERS Safety Report 6369730-9 (Version None)
Quarter: 2009Q3

REPORT INFORMATION
  Report Type: 
  Country: None (occurrence: None)
  Receive Date: 20090923
  Receipt Date: 20090911
  Transmission Date: 20100115
  Serious: Yes (Life-Threatening)
  Sender: FDA-Public Use
  Company Number: FR-PFIZER INC-2009224556

PATIENT
  Age: 50 Year

DRUGS (4)
  1. ZYVOXID [Suspect]
     Dosage: UNK
     Route: 042
     Dates: start: 20090118, end: 20090126
  2. CLAFORAN [Suspect]
     Indication: ENCEPHALITIS MENINGOCOCCAL
     Dosage: UNK
     Route: 042
     Dates: start: 20090107, end: 20090118
  3. VANCOMYCIN [Suspect]
     Indication: ENCEPHALITIS MENINGOCOCCAL
     Dosage: UNK
     Route: 042
     Dates: start: 20090107, end: 20090118
  4. CIFLOX [Suspect]
     Dosage: UNK
     Route: 042
     Dates: start: 20090118, end: 20090126

REACTIONS (1)
  - MYCOTIC ANEURYSM [None]
